FAERS Safety Report 8537899-3 (Version None)
Quarter: 2012Q3

REPORT INFORMATION
  Report Type: 
  Country: None (occurrence: None)
  Receive Date: 20120725
  Receipt Date: 20120717
  Transmission Date: 20120928
  Serious: Yes (Death)
  Sender: FDA-Public Use
  Company Number: US-GLAXOSMITHKLINE-A0984796A

PATIENT
  Age: 54 Year
  Sex: Male

DRUGS (8)
  1. NORVASC [Concomitant]
  2. SPIRIVA [Concomitant]
  3. LOVASTATIN [Concomitant]
  4. HYZAAR [Concomitant]
  5. ADVAIR DISKUS 100/50 [Suspect]
     Indication: CHRONIC OBSTRUCTIVE PULMONARY DISEASE
     Dosage: 1PUFF TWICE PER DAY
     Route: 055
     Dates: start: 20120201, end: 20120714
  6. VENTOLIN [Suspect]
     Indication: CHRONIC OBSTRUCTIVE PULMONARY DISEASE
     Dosage: 2PUFF UNKNOWN
     Route: 055
     Dates: start: 20120201, end: 20120714
  7. TOPROL-XL [Concomitant]
  8. METFORMIN HYDROCHLORIDE [Concomitant]

REACTIONS (3)
  - NEOPLASM [None]
  - NEOPLASM PROGRESSION [None]
  - LUNG NEOPLASM [None]
